FAERS Safety Report 9799864 (Version 1)
Quarter: 2014Q1

REPORT INFORMATION
  Report Type: Spontaneous
  Country: US (occurrence: US)
  Receive Date: 20140106
  Receipt Date: 20140106
  Transmission Date: 20141002
  Serious: Yes (Death)
  Sender: FDA-Public Use
  Company Number: US-VIIV HEALTHCARE LIMITED-A1055266A

PATIENT
  Age: 77 Year
  Sex: Male

DRUGS (1)
  1. EPIVIR [Suspect]
     Indication: ANTIVIRAL TREATMENT
     Dosage: 150MG UNKNOWN
     Dates: start: 20110119

REACTIONS (3)
  - Death [Fatal]
  - Hernia [Unknown]
  - Adverse event [Unknown]
